FAERS Safety Report 24164495 (Version 6)
Quarter: 2024Q4

REPORT INFORMATION
  Report Type: Spontaneous
  Country: AR (occurrence: AR)
  Receive Date: 20240801
  Receipt Date: 20241230
  Transmission Date: 20250115
  Serious: No
  Sender: PFIZER
  Company Number: AR-PFIZER INC-202400226821

PATIENT
  Age: 15 Year
  Sex: Female

DRUGS (2)
  1. GENOTROPIN [Suspect]
     Active Substance: SOMATROPIN
     Indication: Turner^s syndrome
     Dosage: 1.2 MG, DAILY
     Dates: start: 20240424, end: 20240726
  2. GENOTROPIN [Suspect]
     Active Substance: SOMATROPIN
     Dosage: 1.5-2 MG, 7 TIMES PER WEEK
     Dates: start: 20240424, end: 202407

REACTIONS (5)
  - Drug dose omission by device [Unknown]
  - Device issue [Unknown]
  - Device occlusion [Unknown]
  - Device information output issue [Unknown]
  - Product prescribing error [Unknown]

NARRATIVE: CASE EVENT DATE: 20240701
